FAERS Safety Report 4683814-2 (Version None)
Quarter: 2005Q2

REPORT INFORMATION
  Report Type: 
  Country: None (occurrence: None)
  Receive Date: 20050607
  Receipt Date: 20050525
  Transmission Date: 20051028
  Serious: Yes (Hospitalization, Disabling, Other)
  Sender: FDA-Public Use
  Company Number: GB-JNJFOC-20050507275

PATIENT
  Sex: Female
  Weight: 69 kg

DRUGS (3)
  1. RISPERDAL CONSTA [Suspect]
     Route: 030
     Dates: start: 20040930, end: 20050203
  2. THYROXINE [Concomitant]
     Indication: HYPOTHYROIDISM
     Route: 049
  3. BENDROFLUAZIDE [Concomitant]
     Indication: HYPERTENSION
     Route: 049

REACTIONS (6)
  - DYSARTHRIA [None]
  - MUSCULOSKELETAL STIFFNESS [None]
  - OEDEMA [None]
  - SEDATION [None]
  - SLUGGISHNESS [None]
  - WEIGHT INCREASED [None]
